FAERS Safety Report 4968008-5 (Version None)
Quarter: 2006Q2

REPORT INFORMATION
  Report Type: 
  Country: None (occurrence: None)
  Receive Date: 20060410
  Receipt Date: 20060330
  Transmission Date: 20061013
  Serious: Yes (Hospitalization)
  Sender: FDA-Public Use
  Company Number: JP-JNJFOC-20060203921

PATIENT
  Sex: Male
  Weight: 62.5 kg

DRUGS (17)
  1. REMICADE [Suspect]
  2. REMICADE [Suspect]
  3. REMICADE [Suspect]
  4. REMICADE [Suspect]
  5. REMICADE [Suspect]
  6. CRAVIT [Concomitant]
     Dosage: DOSAGE: 4 TIMES/LEFT EYE
     Route: 047
  7. MYDRIN P [Concomitant]
     Dosage: DOSAGE: TWICE/LEFT EYE
     Route: 047
  8. MYDRIN P [Concomitant]
     Dosage: DOSAGE: ONCE/RIGHT EYE
     Route: 047
  9. MYDRIN P [Concomitant]
     Indication: UVEITIS
     Dosage: DOSAGE: ONCE/LEFT EYE
     Route: 047
  10. XALATAN [Concomitant]
     Dosage: DOSAGE: ONCE/RIGHT EYE
     Route: 047
  11. XALATAN [Concomitant]
     Indication: GLAUCOMA
     Dosage: DOSAGE: ONCE/LEFT EYE
     Route: 047
  12. TIMOPTIC [Concomitant]
     Dosage: DOSAGE: TWICE/RIGHT EYE
     Route: 047
  13. TIMOPTIC [Concomitant]
     Indication: GLAUCOMA
     Dosage: DOSAGE: TWICE/LEFT EYE
     Route: 047
  14. DIAMOX [Concomitant]
     Route: 048
  15. DIAMOX [Concomitant]
     Route: 048
  16. ASPARA K [Concomitant]
     Route: 048
  17. ASPARA K [Concomitant]
     Route: 048

REACTIONS (4)
  - CONDITION AGGRAVATED [None]
  - GLAUCOMA [None]
  - INFLAMMATION [None]
  - POST PROCEDURAL COMPLICATION [None]
